FAERS Safety Report 25332393 (Version 1)
Quarter: 2025Q2

REPORT INFORMATION
  Report Type: Spontaneous
  Country: AT (occurrence: AT)
  Receive Date: 20250519
  Receipt Date: 20250519
  Transmission Date: 20250716
  Serious: Yes (Life-Threatening, Other)
  Sender: PFIZER
  Company Number: AT-PFIZER INC-PV202500058092

PATIENT
  Age: 42 Year
  Sex: Male

DRUGS (11)
  1. METHYLPREDNISOLONE SODIUM SUCCINATE [Suspect]
     Active Substance: METHYLPREDNISOLONE SODIUM SUCCINATE
     Indication: Angioedema
     Route: 042
  2. DIPHENHYDRAMINE [Suspect]
     Active Substance: DIPHENHYDRAMINE
     Indication: Angioedema
     Route: 042
  3. EPINEPHRINE [Suspect]
     Active Substance: EPINEPHRINE
     Indication: Angioedema
  4. AMLODIPINE [Concomitant]
     Active Substance: AMLODIPINE BESYLATE
  5. FOSINOPRIL [Concomitant]
     Active Substance: FOSINOPRIL
  6. METOPROLOL [Concomitant]
     Active Substance: METOPROLOL
  7. MOXONIDINE [Concomitant]
     Active Substance: MOXONIDINE
  8. MYCOPHENOLATE MOFETIL [Concomitant]
     Active Substance: MYCOPHENOLATE MOFETIL
  9. PREDNISOLONE [Concomitant]
     Active Substance: PREDNISOLONE
  10. SIROLIMUS [Concomitant]
     Active Substance: SIROLIMUS
  11. TORSEMIDE [Concomitant]
     Active Substance: TORSEMIDE

REACTIONS (1)
  - Drug ineffective [Unknown]
